FAERS Safety Report 9651037 (Version 1)
Quarter: 2013Q4

REPORT INFORMATION
  Report Type: Spontaneous
  Country: IL (occurrence: IL)
  Receive Date: 20131029
  Receipt Date: 20131029
  Transmission Date: 20140711
  Serious: Yes (Hospitalization, Other)
  Sender: FDA-Public Use
  Company Number: PHHY2013IL121084

PATIENT
  Sex: Female

DRUGS (1)
  1. ACLASTA [Suspect]
     Indication: OSTEOPOROSIS
     Dosage: 5MG/100ML, UNK
     Route: 042
     Dates: start: 20130708

REACTIONS (7)
  - Optic neuritis [Recovered/Resolved]
  - Blindness unilateral [Unknown]
  - Uveitis [Recovered/Resolved]
  - Eye pain [Unknown]
  - Pyrexia [Recovered/Resolved]
  - Myalgia [Recovered/Resolved]
  - Headache [Unknown]
